FAERS Safety Report 5357723-X (Version None)
Quarter: 2007Q2

REPORT INFORMATION
  Report Type: 
  Country: None (occurrence: None)
  Receive Date: 20070614
  Receipt Date: 20070612
  Transmission Date: 20071010
  Serious: Yes (Life-Threatening, Hospitalization)
  Sender: FDA-Public Use
  Company Number: GB-ROXANE LABORATORIES, INC-2007-DE-03449GD

PATIENT
  Age: 40 Year
  Sex: Female

DRUGS (1)
  1. MORPHINE [Suspect]
     Indication: BACK PAIN
     Route: 048

REACTIONS (13)
  - ABNORMAL BEHAVIOUR [None]
  - ACCIDENTAL OVERDOSE [None]
  - ACIDOSIS [None]
  - COGNITIVE DISORDER [None]
  - FAECAL INCONTINENCE [None]
  - HEADACHE [None]
  - HYPOXIA [None]
  - LEUKOENCEPHALOPATHY [None]
  - LOSS OF CONSCIOUSNESS [None]
  - PNEUMONIA ASPIRATION [None]
  - RESPIRATORY FAILURE [None]
  - URINARY INCONTINENCE [None]
  - VISUAL DISTURBANCE [None]
